FAERS Safety Report 4411910-3 (Version None)
Quarter: 2004Q3

REPORT INFORMATION
  Report Type: 
  Country: None (occurrence: None)
  Receive Date: 20040730
  Receipt Date: 20040129
  Transmission Date: 20050211
  Serious: No
  Sender: FDA-Public Use
  Company Number: US-GLAXOSMITHKLINE-A0495753A

PATIENT
  Age: 75 Year
  Sex: Male

DRUGS (3)
  1. ZANTAC [Suspect]
     Dosage: 150MG FOUR TIMES PER DAY
     Route: 048
     Dates: start: 20031201
  2. PREVACID [Suspect]
     Dosage: 30MG PER DAY
  3. ALTACE [Concomitant]

REACTIONS (3)
  - ARTHRALGIA [None]
  - MUSCULAR WEAKNESS [None]
  - MYALGIA [None]
